FAERS Safety Report 7048445-8 (Version None)
Quarter: 2010Q4

REPORT INFORMATION
  Report Type: 
  Country: None (occurrence: None)
  Receive Date: 20101015
  Receipt Date: 20101015
  Transmission Date: 20110411
  Serious: Yes (Hospitalization)
  Sender: FDA-Public Use
  Company Number: None

PATIENT
  Age: 78 Year
  Sex: Female
  Weight: 59.8748 kg

DRUGS (2)
  1. MAGNEVIST [Suspect]
     Indication: ANGIOGRAM
     Dosage: 30 ML IV CONTRAST AGENT
     Route: 042
  2. MAGNEVIST [Suspect]
     Indication: NUCLEAR MAGNETIC RESONANCE IMAGING
     Dosage: 30 ML IV CONTRAST AGENT
     Route: 042

REACTIONS (4)
  - COUGH [None]
  - DYSPNOEA [None]
  - SNEEZING [None]
  - WHEEZING [None]
